FAERS Safety Report 16556468 (Version 2)
Quarter: 2019Q4

REPORT INFORMATION
  Report Type: Spontaneous
  Country: US (occurrence: US)
  Receive Date: 20190710
  Receipt Date: 20191212
  Transmission Date: 20200122
  Serious: Yes (Other)
  Sender: FDA-Public Use
  Company Number: US-ASTRAZENECA-2019SE96463

PATIENT
  Age: 61 Year
  Sex: Male
  Weight: 80.3 kg

DRUGS (40)
  1. GABAPENTIN. [Concomitant]
     Active Substance: GABAPENTIN
     Indication: PAIN
     Dates: start: 2013, end: 2016
  2. KALETRA [Concomitant]
     Active Substance: LOPINAVIR\RITONAVIR
  3. NYSTATIN. [Concomitant]
     Active Substance: NYSTATIN
  4. XARELTO [Concomitant]
     Active Substance: RIVAROXABAN
  5. CARISOPRODOL. [Concomitant]
     Active Substance: CARISOPRODOL
  6. NEXIUM [Suspect]
     Active Substance: ESOMEPRAZOLE MAGNESIUM
     Indication: ABDOMINAL DISCOMFORT
     Route: 048
     Dates: start: 2014
  7. NEXIUM [Suspect]
     Active Substance: ESOMEPRAZOLE MAGNESIUM
     Indication: ABDOMINAL DISCOMFORT
     Route: 048
     Dates: start: 201410
  8. TRAMADOL. [Concomitant]
     Active Substance: TRAMADOL
     Indication: PAIN
     Dates: start: 2012, end: 2016
  9. LYRICA [Concomitant]
     Active Substance: PREGABALIN
     Indication: PAIN
     Dates: start: 2015
  10. NEXIUM [Suspect]
     Active Substance: ESOMEPRAZOLE MAGNESIUM
     Indication: ABDOMINAL DISCOMFORT
     Route: 048
     Dates: start: 201402
  11. PRAVASTATIN. [Concomitant]
     Active Substance: PRAVASTATIN
     Dates: start: 2014
  12. BUPROPION. [Concomitant]
     Active Substance: BUPROPION
     Indication: EX-TOBACCO USER
     Dates: start: 2013, end: 2017
  13. DOXYCYCLINE HYCLATE. [Concomitant]
     Active Substance: DOXYCYCLINE HYCLATE
  14. TERAZOSIN [Concomitant]
     Active Substance: TERAZOSIN HYDROCHLORIDE
  15. DIVALPROEX [Concomitant]
     Active Substance: DIVALPROEX SODIUM
  16. MULTIVITAMIN [Concomitant]
     Active Substance: VITAMINS
     Dates: start: 1989
  17. VENTOLIN HFA [Concomitant]
     Active Substance: ALBUTEROL SULFATE
  18. CYCLOBENZAPRINE HCL [Concomitant]
     Active Substance: CYCLOBENZAPRINE HYDROCHLORIDE
  19. ONDANSETRON [Concomitant]
     Active Substance: ONDANSETRON
  20. ERYTHROMYCIN. [Concomitant]
     Active Substance: ERYTHROMYCIN
  21. MOMETASONE FUROATE. [Concomitant]
     Active Substance: MOMETASONE FUROATE
  22. OMEPRAZOLE. [Suspect]
     Active Substance: OMEPRAZOLE
     Indication: ABDOMINAL DISCOMFORT
     Route: 065
     Dates: start: 201503, end: 201506
  23. FAMOTIDINE. [Concomitant]
     Active Substance: FAMOTIDINE
     Dates: start: 201812, end: 201901
  24. QUETIAPINE. [Concomitant]
     Active Substance: QUETIAPINE
     Dates: start: 2012, end: 2015
  25. CEFUROXIME AXETIL. [Concomitant]
     Active Substance: CEFUROXIME AXETIL
  26. MELOXICAM. [Concomitant]
     Active Substance: MELOXICAM
  27. INVEGA [Concomitant]
     Active Substance: PALIPERIDONE
  28. NEXIUM [Suspect]
     Active Substance: ESOMEPRAZOLE MAGNESIUM
     Indication: ABDOMINAL DISCOMFORT
     Route: 048
     Dates: start: 20140227
  29. OMEPRAZOLE. [Suspect]
     Active Substance: OMEPRAZOLE
     Indication: ABDOMINAL DISCOMFORT
     Route: 065
     Dates: start: 201512, end: 201605
  30. CETRIZINE [Concomitant]
     Active Substance: CETIRIZINE HYDROCHLORIDE
     Indication: MULTIPLE ALLERGIES
     Dates: start: 2014
  31. PRAZOSIN. [Concomitant]
     Active Substance: PRAZOSIN
  32. TRAZODONE [Concomitant]
     Active Substance: TRAZODONE HYDROCHLORIDE
     Indication: DEPRESSION
     Dates: start: 2015
  33. OMEPRAZOLE. [Suspect]
     Active Substance: OMEPRAZOLE
     Indication: ABDOMINAL DISCOMFORT
     Route: 065
     Dates: start: 20151208, end: 20151209
  34. SEROQUEL [Concomitant]
     Active Substance: QUETIAPINE FUMARATE
     Indication: DEPRESSION
     Dates: start: 2015
  35. AMLODIPINE [Concomitant]
     Active Substance: AMLODIPINE BESYLATE
     Indication: BLOOD PRESSURE ABNORMAL
     Dates: start: 2014
  36. LAMIVUDINE. [Concomitant]
     Active Substance: LAMIVUDINE
     Indication: INFECTION
     Dates: start: 2014
  37. ZIDOVUDINE. [Concomitant]
     Active Substance: ZIDOVUDINE
     Indication: INFECTION
     Dates: start: 2014
  38. ACETAMINOPHEN-CODEINE [Concomitant]
     Active Substance: ACETAMINOPHEN\CODEINE PHOSPHATE
  39. DULOXETINE HCL [Concomitant]
     Active Substance: DULOXETINE HYDROCHLORIDE
  40. LEVOTHYROXINE. [Concomitant]
     Active Substance: LEVOTHYROXINE

REACTIONS (1)
  - Chronic kidney disease [Not Recovered/Not Resolved]

NARRATIVE: CASE EVENT DATE: 2014
